FAERS Safety Report 8518191-X (Version None)
Quarter: 2012Q3

REPORT INFORMATION
  Report Type: 
  Country: None (occurrence: None)
  Receive Date: 20120718
  Receipt Date: 20111026
  Transmission Date: 20120928
  Serious: No
  Sender: FDA-Public Use
  Company Number: US-BRISTOL-MYERS SQUIBB COMPANY-16197378

PATIENT
  Age: 8 Decade
  Sex: Female

DRUGS (1)
  1. COUMADIN [Suspect]
     Dosage: 1DF: 4.5 PILLS DOSE DECREASED TO 3 PILLS DAILY.

REACTIONS (3)
  - HEADACHE [None]
  - HYPERTENSION [None]
  - HEART RATE INCREASED [None]
